FAERS Safety Report 8988454 (Version 1)
Quarter: 2013Q1

REPORT INFORMATION
  Report Type: Spontaneous
  Country: US (occurrence: None)
  Receive Date: 20121224
  Receipt Date: 20121224
  Transmission Date: 20140127
  Serious: Yes (Life-Threatening)
  Sender: FDA-Public Use
  Company Number: None

PATIENT
  Age: 72 Year
  Sex: Male
  Weight: 85.73 kg

DRUGS (1)
  1. RITUXAN [Suspect]
     Dates: start: 20080808

REACTIONS (1)
  - Non-small cell lung cancer [None]
